FAERS Safety Report 23973662 (Version 1)
Quarter: 2024Q2

REPORT INFORMATION
  Report Type: Spontaneous
  Country: US (occurrence: None)
  Receive Date: 20240613
  Receipt Date: 20240613
  Transmission Date: 20240716
  Serious: No
  Sender: FDA-Public Use
  Company Number: US-MDD US Operations-MDD202402-000740

PATIENT
  Age: 59 Year
  Sex: Male
  Weight: 81.64 kg

DRUGS (4)
  1. APOKYN [Suspect]
     Active Substance: APOMORPHINE HYDROCHLORIDE
     Indication: Parkinson^s disease
     Dates: start: 20240220
  2. APOKYN [Suspect]
     Active Substance: APOMORPHINE HYDROCHLORIDE
     Dates: start: 20240220
  3. RYTARY [Concomitant]
     Active Substance: CARBIDOPA\LEVODOPA
     Indication: Parkinson^s disease
     Dosage: NOT PROVIDED
  4. MIRAPEX [Concomitant]
     Active Substance: PRAMIPEXOLE DIHYDROCHLORIDE
     Indication: Parkinson^s disease
     Dosage: NOT PROVIDED

REACTIONS (3)
  - Injection site bruising [Recovering/Resolving]
  - Nausea [Recovering/Resolving]
  - Injection site mass [Recovered/Resolved]

NARRATIVE: CASE EVENT DATE: 20240225
